FAERS Safety Report 6471043-1 (Version None)
Quarter: 2009Q4

REPORT INFORMATION
  Report Type: 
  Country: None (occurrence: None)
  Receive Date: 20091203
  Receipt Date: 20091125
  Transmission Date: 20100525
  Serious: Yes (Disabling)
  Sender: FDA-Public Use
  Company Number: CA-PFIZER INC-2009290391

PATIENT
  Age: 69 Year
  Sex: Male
  Weight: 87.3 kg

DRUGS (21)
  1. PREDNISONE [Suspect]
     Indication: PROSTATE CANCER
     Dosage: 5 MG, 2X/DAY
     Route: 048
     Dates: start: 20091020, end: 20091027
  2. BLINDED *NO SUBJECT DRUG [Suspect]
     Indication: PROSTATE CANCER
     Dosage: 37.5 MG, 1X/DAY
     Route: 048
     Dates: start: 20091020, end: 20091027
  3. BLINDED *PLACEBO [Suspect]
     Indication: PROSTATE CANCER
     Dosage: 37.5 MG, 1X/DAY
     Route: 048
     Dates: start: 20091020, end: 20091027
  4. BLINDED SUNITINIB MALATE [Suspect]
     Indication: PROSTATE CANCER
     Dosage: 37.5 MG, 1X/DAY
     Route: 048
     Dates: start: 20091020, end: 20091027
  5. DIOVAN [Concomitant]
     Indication: HYPERTENSION
     Dosage: UNK
     Dates: start: 20080901
  6. PLAVIX [Concomitant]
     Indication: ANGINA PECTORIS
     Dosage: UNK
     Dates: start: 20060301
  7. PLAVIX [Concomitant]
     Indication: ARTERIAL STENT INSERTION
  8. RIVASA [Concomitant]
     Indication: ANGINA PECTORIS
     Dosage: UNK
     Dates: start: 20060301
  9. RIVASA [Concomitant]
     Indication: ARTERIAL STENT INSERTION
  10. METFORMIN HYDROCHLORIDE [Concomitant]
     Indication: DIABETES MELLITUS
     Dosage: UNK
     Dates: start: 20090301
  11. PANTOPRAZOLE [Concomitant]
     Indication: GASTROOESOPHAGEAL REFLUX PROPHYLAXIS
     Dosage: UNK
     Dates: start: 20060501
  12. CALCIUM WITH VITAMIN D [Concomitant]
     Indication: SUPPLEMENTATION THERAPY
     Dosage: UNK
     Dates: start: 20061001
  13. METOPROLOL [Concomitant]
     Indication: HYPERTENSION
     Dosage: UNK
     Dates: start: 20070601
  14. AMLODIPINE BESILATE [Concomitant]
     Indication: HYPERTENSION
     Dosage: UNK
     Dates: start: 20070801
  15. ZOMETA [Concomitant]
     Indication: BONE DISORDER
     Dosage: UNK
     Dates: start: 20080601
  16. LEUPRORELIN ACETATE [Concomitant]
     Indication: PROSTATIC DISORDER
     Dosage: UNK
     Dates: start: 20070101
  17. STATEX [Concomitant]
     Indication: PAIN
     Dosage: UNK
     Dates: start: 20090901
  18. PREDNISONE [Concomitant]
     Indication: ARTHRITIS
     Dosage: UNK
     Dates: start: 20020201
  19. LIPITOR [Concomitant]
     Indication: DYSLIPIDAEMIA
     Dosage: UNK
     Dates: start: 20060301
  20. ANUSOL [Concomitant]
     Indication: PROCTALGIA
     Dosage: UNK
     Dates: start: 20090601
  21. DOCUSATE SODIUM [Concomitant]
     Indication: CONSTIPATION
     Dosage: AS NEEDED
     Dates: start: 20090601

REACTIONS (1)
  - CEREBRAL ISCHAEMIA [None]
